FAERS Safety Report 8152471-5 (Version None)
Quarter: 2012Q1

REPORT INFORMATION
  Report Type: 
  Country: None (occurrence: None)
  Receive Date: 20120221
  Receipt Date: 20120215
  Transmission Date: 20120608
  Serious: Yes (Hospitalization, Other)
  Sender: FDA-Public Use
  Company Number: US-BAYER-2012-016730

PATIENT
  Age: 28 Year

DRUGS (3)
  1. COUMADIN [Concomitant]
     Indication: PULMONARY EMBOLISM
  2. YAZ [Suspect]
     Indication: MENSTRUATION IRREGULAR
  3. COUMADIN [Concomitant]
     Indication: DEEP VEIN THROMBOSIS

REACTIONS (5)
  - PULMONARY EMBOLISM [None]
  - DEEP VEIN THROMBOSIS [None]
  - CHEST PAIN [None]
  - DYSPNOEA [None]
  - ASTHENIA [None]
